FAERS Safety Report 22907308 (Version 3)
Quarter: 2024Q1

REPORT INFORMATION
  Report Type: Spontaneous
  Country: JP (occurrence: JP)
  Receive Date: 20230905
  Receipt Date: 20240104
  Transmission Date: 20240409
  Serious: Yes (Other)
  Sender: FDA-Public Use
  Company Number: JP-JOURNEY MEDICAL CORPORATION-2023JNY00140

PATIENT
  Age: 44 Year
  Sex: Female

DRUGS (4)
  1. QBREXZA [Suspect]
     Active Substance: GLYCOPYRRONIUM TOSYLATE
     Indication: Hyperhidrosis
     Dosage: 1 DOSAGE FORM, 1X/DAY
     Route: 061
     Dates: start: 20220606
  2. ALLELOCK [Concomitant]
     Active Substance: OLOPATADINE HYDROCHLORIDE
     Indication: Dermatitis atopic
     Dosage: 5 MG
     Route: 048
     Dates: start: 20180422
  3. SUPLATAST TOSILATE [Concomitant]
     Active Substance: SUPLATAST TOSILATE
     Indication: Dermatitis atopic
     Dosage: 200 MG
     Route: 048
     Dates: start: 20180422
  4. ALLEGRA [Concomitant]
     Active Substance: FEXOFENADINE HYDROCHLORIDE
     Indication: Dermatitis atopic
     Dosage: 120 MG
     Route: 048
     Dates: start: 20180422

REACTIONS (1)
  - Retinal haemorrhage [Recovered/Resolved]

NARRATIVE: CASE EVENT DATE: 20230601
